FAERS Safety Report 6740307-6 (Version None)
Quarter: 2010Q2

REPORT INFORMATION
  Report Type: 
  Country: None (occurrence: None)
  Receive Date: 20100520
  Receipt Date: 20100209
  Transmission Date: 20101027
  Serious: Yes (Other)
  Sender: FDA-Public Use
  Company Number: 2009198091

PATIENT
  Age: 25 Year
  Sex: Female
  Weight: 62 kg

DRUGS (3)
  1. MEDROXYPROGESTERONE ACETATE INJ [Suspect]
     Indication: CONTRACEPTION
     Dosage: 150MG, EVERY 3 MONTHS, INTRAMUSCULAR
     Route: 030
     Dates: start: 20080503, end: 20090129
  2. ISONIAZID [Concomitant]
  3. ETHAMBUTOL HYDROCHLORIDE [Concomitant]

REACTIONS (2)
  - DRUG INEFFECTIVE [None]
  - UNINTENDED PREGNANCY [None]
